FAERS Safety Report 5886870-9 (Version None)
Quarter: 2008Q3

REPORT INFORMATION
  Report Type: 
  Country: None (occurrence: None)
  Receive Date: 20080915
  Receipt Date: 20080908
  Transmission Date: 20090109
  Serious: Yes (Death)
  Sender: FDA-Public Use
  Company Number: 100#01#2008-03098

PATIENT
  Age: 3 Year
  Sex: Female

DRUGS (2)
  1. SUMAMED(125 MILLIGRAM, TABLETS) (AZITHROMYCIN) [Suspect]
     Indication: BACTERIAL TRACHEITIS
     Dosage: 125 MG ONCE A DAY (ONCE), ORAL, ONCE
     Route: 048
     Dates: start: 20080515, end: 20080515
  2. LINEX(CAPSULES) (LACTOBACILLUS ACIDOPHILUS) [Concomitant]

REACTIONS (8)
  - APNOEA [None]
  - ASPHYXIA [None]
  - CHOKING [None]
  - COUGH [None]
  - DYSPNOEA [None]
  - FOREIGN BODY TRAUMA [None]
  - PHARYNGEAL OEDEMA [None]
  - SYNCOPE [None]
